FAERS Safety Report 8392542-1 (Version None)
Quarter: 2012Q2

REPORT INFORMATION
  Report Type: 
  Country: None (occurrence: None)
  Receive Date: 20120529
  Receipt Date: 20120521
  Transmission Date: 20120825
  Serious: Yes (Other)
  Sender: FDA-Public Use
  Company Number: US-ASTRAZENECA-2011SE28067

PATIENT
  Age: 44 Year
  Sex: Female

DRUGS (2)
  1. UNSPECIFIED ANXIETY MEDICATION [Suspect]
     Route: 065
  2. SEROQUEL XR [Suspect]
     Route: 048

REACTIONS (5)
  - SUICIDAL IDEATION [None]
  - INSOMNIA [None]
  - DRUG DOSE OMISSION [None]
  - PANIC DISORDER [None]
  - ANXIETY DISORDER [None]
